FAERS Safety Report 15388049 (Version 4)
Quarter: 2018Q4

REPORT INFORMATION
  Report Type: Spontaneous
  Country: PL (occurrence: PL)
  Receive Date: 20180915
  Receipt Date: 20181119
  Transmission Date: 20190204
  Serious: Yes (Hospitalization)
  Sender: FDA-Public Use
  Company Number: PL-AUROBINDO-AUR-APL-2018-045797

PATIENT
  Age: 10 Year
  Sex: Female

DRUGS (7)
  1. SODIUM CHLORIDE. [Concomitant]
     Active Substance: SODIUM CHLORIDE
     Indication: VIRAL UPPER RESPIRATORY TRACT INFECTION
     Dosage: UNK
     Route: 065
  2. HYDROCORTISONE. [Suspect]
     Active Substance: HYDROCORTISONE
     Indication: ACUTE HAEMORRHAGIC OEDEMA OF INFANCY
     Dosage: UNK
     Route: 061
     Dates: start: 201512
  3. BETAMETHASONE DIPROPIONATE;CLOTRIMAZOLE;GENTA [Suspect]
     Active Substance: BETAMETHASONE DIPROPIONATE\CLOTRIMAZOLE\GENTAMICIN SULFATE
     Indication: ACUTE HAEMORRHAGIC OEDEMA OF INFANCY
     Dosage: UNK
     Route: 061
  4. AZITHROMYCIN ANHYDROUS. [Suspect]
     Active Substance: AZITHROMYCIN ANHYDROUS
     Indication: ACUTE HAEMORRHAGIC OEDEMA OF INFANCY
     Dosage: UNK ()
     Route: 048
     Dates: start: 201512
  5. BETAMETHASONE DIPROPIONATE W/CLOTRIMAZOLE [Suspect]
     Active Substance: BETAMETHASONE DIPROPIONATE\CLOTRIMAZOLE
     Indication: ACUTE HAEMORRHAGIC OEDEMA OF INFANCY
     Dosage: UNK
     Route: 061
     Dates: start: 201512
  6. BETAMETHASONE DIPROPIONATE W/GENTAMICIN [Suspect]
     Active Substance: BETAMETHASONE DIPROPIONATE\GENTAMICIN SULFATE
     Indication: ACUTE HAEMORRHAGIC OEDEMA OF INFANCY
     Dosage: UNK
     Route: 061
     Dates: start: 201512
  7. BETAMETHASONE DIPROPIONATE. [Suspect]
     Active Substance: BETAMETHASONE DIPROPIONATE
     Indication: ACUTE HAEMORRHAGIC OEDEMA OF INFANCY
     Dosage: UNK ()
     Route: 061
     Dates: start: 201512

REACTIONS (1)
  - Drug ineffective [Unknown]

NARRATIVE: CASE EVENT DATE: 201512
